FAERS Safety Report 6161979-3 (Version None)
Quarter: 2009Q2

REPORT INFORMATION
  Report Type: 
  Country: None (occurrence: None)
  Receive Date: 20090417
  Receipt Date: 20090417
  Transmission Date: 20091009
  Serious: Yes (Life-Threatening)
  Sender: FDA-Public Use
  Company Number: None

PATIENT
  Age: 60 Year
  Sex: Female
  Weight: 68.4932 kg

DRUGS (1)
  1. ADVAIR DISKUS 100/50 [Suspect]
     Indication: ALLERGIC RESPIRATORY SYMPTOM
     Dosage: 100/50 PRE-MEASURED DOSES BID INHAL
     Route: 055
     Dates: start: 20090313, end: 20090317

REACTIONS (2)
  - CONDITION AGGRAVATED [None]
  - DYSPNOEA [None]
